FAERS Safety Report 12372697 (Version 1)
Quarter: 2016Q2

REPORT INFORMATION
  Report Type: Spontaneous
  Country: US (occurrence: US)
  Receive Date: 20160516
  Receipt Date: 20160516
  Transmission Date: 20160815
  Serious: No
  Sender: FDA-Public Use
  Company Number: ADR-2015-01266

PATIENT
  Age: 55 Year
  Sex: Male

DRUGS (2)
  1. BACLOFEN. [Suspect]
     Active Substance: BACLOFEN
     Route: 037
  2. FENTANYL. [Suspect]
     Active Substance: FENTANYL
     Route: 037

REACTIONS (2)
  - Mobility decreased [Unknown]
  - Pain [Unknown]
